FAERS Safety Report 4660500-6 (Version None)
Quarter: 2005Q2

REPORT INFORMATION
  Report Type: 
  Country: None (occurrence: None)
  Receive Date: 20050511
  Receipt Date: 20050511
  Transmission Date: 20051028
  Serious: Yes (Hospitalization)
  Sender: FDA-Public Use
  Company Number: None

PATIENT
  Age: 87 Year
  Sex: Male
  Weight: 67.7 kg

DRUGS (11)
  1. WARFARIN SODIUM [Suspect]
     Indication: ATRIAL FIBRILLATION
     Dosage: PO 2.5 MG, 3 MG
     Route: 048
     Dates: start: 20040831, end: 20040901
  2. WARFARIN SODIUM [Suspect]
     Indication: ATRIAL FIBRILLATION
     Dosage: PO 2.5 MG, 3 MG
     Route: 048
     Dates: start: 20041214, end: 20050118
  3. COLCHICINE 0.6 MG QD ANTIBIOTIC (UNKNOWN) [Suspect]
     Indication: GOUT
     Dosage: PO
     Route: 048
     Dates: start: 20050127
  4. APAP TAB [Concomitant]
  5. BUMETANIDE [Concomitant]
  6. CALCIUM GLUCONATE [Concomitant]
  7. CHLORPHENIRAMINE MALEATE [Concomitant]
  8. SELENIUM SULFATE SHAMPOO [Concomitant]
  9. AMMONIUM LACTATE 12% LOTION [Concomitant]
  10. METOPROLOL [Concomitant]
  11. MULTI-VITAMIN [Concomitant]

REACTIONS (8)
  - ABDOMINAL PAIN [None]
  - ARTHRALGIA [None]
  - BACK PAIN [None]
  - HYPOTENSION [None]
  - INTERNATIONAL NORMALISED RATIO INCREASED [None]
  - MUSCLE HAEMORRHAGE [None]
  - PAIN [None]
  - RETROPERITONEAL HAEMORRHAGE [None]
